FAERS Safety Report 8761379 (Version 2)
Quarter: 2012Q4

REPORT INFORMATION
  Report Type: 
  Country: US (occurrence: US)
  Receive Date: 20120829
  Receipt Date: 20120926
  Transmission Date: 20130627
  Serious: Yes (Other)
  Sender: FDA-Public Use
  Company Number: US-PFIZER INC-2012207673

PATIENT
  Age: 2 Year
  Sex: Male

DRUGS (1)
  1. EPIPEN JR [Suspect]
     Indication: HYPERSENSITIVITY
     Dosage: UNK
     Dates: start: 20120617

REACTIONS (3)
  - Injury associated with device [Unknown]
  - Crying [Unknown]
  - Pain [Unknown]
